FAERS Safety Report 15312537 (Version 1)
Quarter: 2018Q3

REPORT INFORMATION
  Report Type: Spontaneous
  Country: US (occurrence: US)
  Receive Date: 20180823
  Receipt Date: 20180823
  Transmission Date: 20181010
  Serious: No
  Sender: FDA-Public Use
  Company Number: US-SA-2018SA231185

PATIENT
  Age: 62 Year
  Sex: Female

DRUGS (2)
  1. PRALUENT [Suspect]
     Active Substance: ALIROCUMAB
     Dosage: 300 MG, QM
     Route: 058
     Dates: start: 20180727
  2. ALIROCUMAB PREFILLED PEN [Suspect]
     Active Substance: ALIROCUMAB
     Dosage: 300 MG, QM
     Route: 058
     Dates: start: 20180727

REACTIONS (3)
  - Rash pustular [Unknown]
  - Lymphadenopathy [Unknown]
  - Discharge [Unknown]

NARRATIVE: CASE EVENT DATE: 20180730
